FAERS Safety Report 5203584-9 (Version None)
Quarter: 2007Q1

REPORT INFORMATION
  Report Type: 
  Country: None (occurrence: None)
  Receive Date: 20070110
  Receipt Date: 20070102
  Transmission Date: 20070707
  Serious: Yes (Hospitalization)
  Sender: FDA-Public Use
  Company Number: US-ROCHE-438833

PATIENT
  Age: 24 Year
  Sex: Male
  Weight: 81.6 kg

DRUGS (3)
  1. ACCUTANE [Suspect]
     Indication: ACNE
     Route: 048
     Dates: start: 19940615, end: 19940615
  2. ACCUTANE [Suspect]
     Route: 048
     Dates: start: 19970615, end: 19971215
  3. ACCUTANE [Suspect]
     Route: 048
     Dates: start: 20020715, end: 20030115

REACTIONS (44)
  - ACTIVATED PARTIAL THROMBOPLASTIN TIME PROLONGED [None]
  - ALANINE AMINOTRANSFERASE INCREASED [None]
  - ARTHRALGIA [None]
  - ARTHRITIS [None]
  - ARTHRITIS REACTIVE [None]
  - ARTHROPATHY [None]
  - ASPARTATE AMINOTRANSFERASE INCREASED [None]
  - ATTENTION DEFICIT/HYPERACTIVITY DISORDER [None]
  - BLOOD AMYLASE INCREASED [None]
  - COLITIS [None]
  - CROHN'S DISEASE [None]
  - DECREASED APPETITE [None]
  - DECREASED INTEREST [None]
  - DEPRESSED MOOD [None]
  - DEPRESSION [None]
  - DERMATILLOMANIA [None]
  - DUODENITIS [None]
  - EPSTEIN-BARR VIRUS ANTIGEN POSITIVE [None]
  - EXCORIATION [None]
  - FATIGUE [None]
  - FEAR [None]
  - FLIGHT OF IDEAS [None]
  - GALLBLADDER POLYP [None]
  - GASTRITIS [None]
  - GENERALISED ANXIETY DISORDER [None]
  - HAEMORRHOIDS [None]
  - HIATUS HERNIA [None]
  - ILEITIS [None]
  - INCREASED APPETITE [None]
  - INFLAMMATORY BOWEL DISEASE [None]
  - INJURY [None]
  - INSOMNIA [None]
  - IRRITABLE BOWEL SYNDROME [None]
  - NEPHROLITHIASIS [None]
  - OEDEMA PERIPHERAL [None]
  - OSTEOPOROSIS [None]
  - PAIN IN EXTREMITY [None]
  - POOR QUALITY SLEEP [None]
  - RED BLOOD CELL SEDIMENTATION RATE INCREASED [None]
  - SELF ESTEEM INFLATED [None]
  - SLEEP DISORDER [None]
  - SPLENOMEGALY [None]
  - SPONDYLOARTHROPATHY [None]
  - THINKING ABNORMAL [None]
